FAERS Safety Report 12644970 (Version 1)
Quarter: 2016Q3

REPORT INFORMATION
  Report Type: Spontaneous
  Country: US (occurrence: US)
  Receive Date: 20160811
  Receipt Date: 20160811
  Transmission Date: 20161109
  Serious: Yes (Other)
  Sender: FDA-Public Use
  Company Number: US-ENDO PHARMACEUTICALS INC.-2016-001742

PATIENT
  Sex: Female
  Weight: 79 kg

DRUGS (1)
  1. PREDNISONE TABLETS [Suspect]
     Active Substance: PREDNISONE
     Indication: PRODUCT USED FOR UNKNOWN INDICATION
     Route: 065
     Dates: start: 1990

REACTIONS (3)
  - Visual impairment [Recovered/Resolved]
  - Hypertension [Recovered/Resolved]
  - Blood pressure fluctuation [Recovered/Resolved]
